FAERS Safety Report 9123565 (Version 1)
Quarter: 2013Q1

REPORT INFORMATION
  Report Type: Spontaneous
  Country: IT (occurrence: IT)
  Receive Date: 20130115
  Receipt Date: 20130115
  Transmission Date: 20140127
  Serious: Yes (Other)
  Sender: FDA-Public Use
  Company Number: PHHY2013IT002682

PATIENT
  Sex: Female

DRUGS (4)
  1. COTAREG [Suspect]
     Dosage: 12.5 MG, QW2
     Route: 048
  2. COTAREG [Suspect]
     Dosage: 1 DF, (12,5 MF FOR 4 DAYS/WEEK AND 25 MG FOR 3 DAYS/WEEK)
     Route: 048
  3. COTAREG [Suspect]
     Dosage: 12.5 MG, IN THE EVENING
     Route: 048
  4. TAREG [Suspect]
     Dosage: UNK, QW5

REACTIONS (5)
  - Pleural effusion [Unknown]
  - Dyspnoea [Unknown]
  - Chest discomfort [Unknown]
  - Asthenia [Unknown]
  - Hypotension [Unknown]
